FAERS Safety Report 23456785 (Version 1)
Quarter: 2024Q1

REPORT INFORMATION
  Report Type: Spontaneous
  Country: US (occurrence: US)
  Receive Date: 20240130
  Receipt Date: 20240130
  Transmission Date: 20240409
  Serious: No
  Sender: FDA-Public Use
  Company Number: CID000000000042469

PATIENT

DRUGS (2)
  1. ALPRAZOLAM [Suspect]
     Active Substance: ALPRAZOLAM
     Indication: Product used for unknown indication
     Route: 065
  2. ALPRAZOLAM [Suspect]
     Active Substance: ALPRAZOLAM
     Indication: Product used for unknown indication
     Route: 065

REACTIONS (11)
  - Visual impairment [Unknown]
  - Drug ineffective [Unknown]
  - Palpitations [Unknown]
  - Paraesthesia [Unknown]
  - Withdrawal syndrome [Unknown]
  - Mental disorder [Unknown]
  - Panic attack [Unknown]
  - Product quality issue [Unknown]
  - Anxiety [Unknown]
  - Expired product administered [Unknown]
  - Adverse event [Unknown]
